FAERS Safety Report 5016539-4 (Version None)
Quarter: 2006Q2

REPORT INFORMATION
  Report Type: 
  Country: None (occurrence: None)
  Receive Date: 20060602
  Receipt Date: 20060220
  Transmission Date: 20061013
  Serious: Yes (Other)
  Sender: FDA-Public Use
  Company Number: PHRM2006FR00834

PATIENT
  Age: 77 Year
  Sex: Male
  Weight: 102 kg

DRUGS (6)
  1. GLEEVEC [Suspect]
     Indication: CHRONIC MYELOID LEUKAEMIA
     Dosage: 300 MG DAILY
     Route: 048
     Dates: start: 20060301
  2. GLEEVEC [Suspect]
     Dosage: 600 MG DAILY
     Route: 048
     Dates: start: 20051115, end: 20060216
  3. CORDARONE [Concomitant]
     Dosage: 3 DF PER WEEK
     Route: 048
  4. TRIATEC [Concomitant]
     Dosage: 2.5 MG, QD
     Route: 048
  5. ASPEGIC 325 [Concomitant]
     Dosage: 250 MG, QD
     Route: 048
  6. DYSALFA [Concomitant]
     Dosage: 1 DF, QD

REACTIONS (7)
  - CHEILITIS [None]
  - CONJUNCTIVITIS [None]
  - DERMATITIS EXFOLIATIVE [None]
  - DRY MOUTH [None]
  - PRURITUS [None]
  - PYREXIA [None]
  - SKIN DISORDER [None]
